FAERS Safety Report 13737356 (Version 1)
Quarter: 2017Q3

REPORT INFORMATION
  Report Type: Spontaneous
  Country: IT (occurrence: IT)
  Receive Date: 20170710
  Receipt Date: 20170710
  Transmission Date: 20171127
  Serious: Yes (Other)
  Sender: FDA-Public Use
  Company Number: IT-TEVA-783687ROM

PATIENT
  Age: 21 Year

DRUGS (6)
  1. IFOSFAMIDE. [Suspect]
     Active Substance: IFOSFAMIDE
     Indication: NUT MIDLINE CARCINOMA
     Dosage: 2.5 G/M2 DAY 1-3; BIWEEKLY; 6 CYCLES
     Route: 065
  2. ROMIDEPSIN [Suspect]
     Active Substance: ROMIDEPSIN
     Indication: NUT MIDLINE CARCINOMA
     Dosage: 14 MG/MQ FOR 3 DOSES
     Route: 065
  3. CISPLATIN. [Suspect]
     Active Substance: CISPLATIN
     Indication: NUT MIDLINE CARCINOMA
     Dosage: DAY 2; BIWEEKLY; 6 CYCLES
     Route: 065
  4. FILGRASTIM [Concomitant]
     Active Substance: FILGRASTIM
     Route: 065
  5. PACLITAXEL. [Suspect]
     Active Substance: PACLITAXEL
     Indication: NUT MIDLINE CARCINOMA
     Dosage: DAY 1; BIWEEKLY; 6 CYCLES
     Route: 065
  6. MESNA. [Suspect]
     Active Substance: MESNA
     Indication: NUT MIDLINE CARCINOMA
     Dosage: BIWEEKLY; 6 CYCLES
     Route: 065

REACTIONS (2)
  - Drug resistance [Unknown]
  - Haematotoxicity [Unknown]
